FAERS Safety Report 6823754-3 (Version None)
Quarter: 2010Q3

REPORT INFORMATION
  Report Type: 
  Country: None (occurrence: None)
  Receive Date: 20100708
  Receipt Date: 20060903
  Transmission Date: 20110219
  Serious: No
  Sender: FDA-Public Use
  Company Number: US-PFIZER INC-2006109385

PATIENT
  Sex: Female
  Weight: 103.42 kg

DRUGS (3)
  1. CHANTIX [Suspect]
     Indication: SMOKING CESSATION THERAPY
     Dates: start: 20060831
  2. LEVOTHYROXINE SODIUM [Concomitant]
  3. ZANTAC [Concomitant]

REACTIONS (5)
  - CONFUSIONAL STATE [None]
  - DIZZINESS [None]
  - HEART RATE INCREASED [None]
  - MOOD ALTERED [None]
  - NAUSEA [None]
